FAERS Safety Report 22042665 (Version 2)
Quarter: 2023Q1

REPORT INFORMATION
  Report Type: Spontaneous
  Country: CA (occurrence: None)
  Receive Date: 20230228
  Receipt Date: 20230303
  Transmission Date: 20230418
  Serious: Yes (Hospitalization, Other)
  Sender: FDA-Public Use
  Company Number: CA-MLMSERVICE-20230217-4113334-1

PATIENT
  Age: 78 Year
  Sex: Female

DRUGS (2)
  1. METHOTREXATE [Suspect]
     Active Substance: METHOTREXATE
     Indication: Polyarthritis
     Route: 048
  2. GOLIMUMAB [Suspect]
     Active Substance: GOLIMUMAB
     Indication: Polyarthritis
     Route: 042

REACTIONS (7)
  - Tricuspid valve incompetence [Recovered/Resolved]
  - Mitral valve incompetence [Recovered/Resolved]
  - Pericarditis fungal [Recovered/Resolved]
  - Aspergillus infection [Recovered/Resolved]
  - Atrial fibrillation [Recovered/Resolved]
  - Pericardial effusion [Recovered/Resolved]
  - Product use in unapproved indication [Unknown]
